FAERS Safety Report 7884910-9 (Version None)
Quarter: 2011Q4

REPORT INFORMATION
  Report Type: 
  Country: None (occurrence: None)
  Receive Date: 20111102
  Receipt Date: 20111021
  Transmission Date: 20120403
  Serious: Yes (Hospitalization)
  Sender: FDA-Public Use
  Company Number: US-BAYER-2011-048709

PATIENT
  Age: 47 Year
  Sex: Female
  Weight: 79.819 kg

DRUGS (10)
  1. LEXAPRO [Concomitant]
  2. CITALOPRAM HYDROBROMIDE [Concomitant]
  3. LIBRIUM [Concomitant]
  4. YASMIN [Suspect]
     Indication: CONTRACEPTION
     Dosage: UNK
     Dates: start: 20040101, end: 20090101
  5. CHLORDIAZEPOX [Concomitant]
  6. JANUVIA [Concomitant]
  7. DROSPIRENONE AND ETHINYL ESTRADIOL [Suspect]
     Indication: CONTRACEPTION
     Dosage: UNK
     Dates: start: 20040101, end: 20090101
  8. LOVASTATIN [Concomitant]
  9. GLUCOTROL XL [Concomitant]
  10. LISINOPRIL [Concomitant]

REACTIONS (4)
  - DEEP VEIN THROMBOSIS [None]
  - STRESS [None]
  - INJURY [None]
  - PAIN [None]
